FAERS Safety Report 9894479 (Version 2)
Quarter: 2014Q1

REPORT INFORMATION
  Report Type: Spontaneous
  Country: US (occurrence: US)
  Receive Date: 20140213
  Receipt Date: 20140213
  Transmission Date: 20141002
  Serious: Yes (Disabling)
  Sender: FDA-Public Use
  Company Number: US-GE HEALTHCARE MEDICAL DIAGNOSTICS-OSCN-PR-0810S-0574

PATIENT
  Age: 38 Year
  Sex: Male

DRUGS (6)
  1. OMNISCAN [Suspect]
     Indication: OPTIC NEURITIS
     Route: 042
     Dates: start: 20061009, end: 20061009
  2. GADOLINIUM (UNSPECIFIED) [Suspect]
     Indication: NUCLEAR MAGNETIC RESONANCE IMAGING BRAIN
     Dates: start: 20080331, end: 20080331
  3. EPOGEN [Concomitant]
  4. WARFARIN [Concomitant]
  5. HYDROCODONE [Concomitant]
  6. METHADONE [Concomitant]

REACTIONS (1)
  - Nephrogenic systemic fibrosis [Not Recovered/Not Resolved]
